FAERS Safety Report 16857890 (Version 1)
Quarter: 2019Q3

REPORT INFORMATION
  Report Type: Spontaneous
  Country: JP (occurrence: JP)
  Receive Date: 20190926
  Receipt Date: 20190926
  Transmission Date: 20191005
  Serious: Yes (Hospitalization)
  Sender: FDA-Public Use
  Company Number: JP-JNJFOC-20190909121

PATIENT
  Age: 86 Year
  Sex: Female

DRUGS (3)
  1. SIMPONI [Suspect]
     Active Substance: GOLIMUMAB
     Indication: RHEUMATOID ARTHRITIS
     Route: 058
  2. SIMPONI [Suspect]
     Active Substance: GOLIMUMAB
     Dosage: UNKNOWN
     Route: 058
     Dates: start: 20190903
  3. SIMPONI [Suspect]
     Active Substance: GOLIMUMAB
     Dosage: UNKNOWN
     Route: 058
     Dates: start: 20190806, end: 20190806

REACTIONS (2)
  - Arthralgia [Unknown]
  - Weight decreased [Recovering/Resolving]

NARRATIVE: CASE EVENT DATE: 201908
